FAERS Safety Report 13703007 (Version 4)
Quarter: 2018Q2

REPORT INFORMATION
  Report Type: Report from Study
  Country: FR (occurrence: FR)
  Receive Date: 20170629
  Receipt Date: 20180405
  Transmission Date: 20180711
  Serious: Yes (Death, Hospitalization, Other)
  Sender: FDA-Public Use
  Company Number: FR-BRISTOL-MYERS SQUIBB COMPANY-BMS-2017-045053

PATIENT
  Age: 70 Year
  Sex: Male

DRUGS (1)
  1. NIVOLUMAB [Suspect]
     Active Substance: NIVOLUMAB
     Indication: LUNG NEOPLASM MALIGNANT
     Dosage: 250 MG, Q2WK
     Route: 042
     Dates: start: 20170105, end: 20170316

REACTIONS (4)
  - Lymphadenopathy mediastinal [Fatal]
  - Malignant neoplasm progression [Not Recovered/Not Resolved]
  - Dyspnoea [Fatal]
  - Stent placement [Unknown]

NARRATIVE: CASE EVENT DATE: 20170420
